FAERS Safety Report 5129253-1 (Version None)
Quarter: 2006Q4

REPORT INFORMATION
  Report Type: 
  Country: None (occurrence: None)
  Receive Date: 20061011
  Receipt Date: 20060601
  Transmission Date: 20070319
  Serious: Yes (Death)
  Sender: FDA-Public Use
  Company Number: 2006-144280-NL

PATIENT
  Age: 64 Year
  Sex: Male

DRUGS (7)
  1. DANAPAROID SODIUM [Suspect]
     Indication: DISSEMINATED INTRAVASCULAR COAGULATION
     Dosage: 2500 ANTI)XA INTRAVENOUS (NOS)
     Route: 042
     Dates: start: 20050810, end: 20050812
  2. ANTITHROMBIN III [Concomitant]
  3. FUROSEMIDE [Concomitant]
  4. DOPAMINE HCL [Concomitant]
  5. POTASSIUM CANRENOATE [Concomitant]
  6. CEFTAZIDIME [Concomitant]
  7. NAFAMOSTAT MESILATE [Concomitant]

REACTIONS (6)
  - CONCOMITANT DISEASE AGGRAVATED [None]
  - DRUG EFFECT DECREASED [None]
  - HAEMORRHAGE SUBCUTANEOUS [None]
  - HEPATIC FAILURE [None]
  - MULTI-ORGAN FAILURE [None]
  - RENAL FAILURE [None]
